FAERS Safety Report 10246658 (Version 1)
Quarter: 2014Q2

REPORT INFORMATION
  Report Type: Other
  Country: GB (occurrence: GB)
  Receive Date: 20140619
  Receipt Date: 20140619
  Transmission Date: 20141212
  Serious: Yes (Hospitalization)
  Sender: FDA-Public Use
  Company Number: GB-SHIRE-GB201403094

PATIENT
  Sex: Male

DRUGS (1)
  1. FIRAZYR [Suspect]
     Indication: PRODUCT USED FOR UNKNOWN INDICATION
     Dosage: 30 MG, AS REQ^D
     Route: 058

REACTIONS (2)
  - Hospitalisation [Unknown]
  - Expired product administered [Unknown]
